FAERS Safety Report 4767350-0 (Version None)
Quarter: 2005Q3

REPORT INFORMATION
  Report Type: 
  Country: None (occurrence: None)
  Receive Date: 20050913
  Receipt Date: 20050810
  Transmission Date: 20060218
  Serious: Yes (Death, Hospitalization)
  Sender: FDA-Public Use
  Company Number: US-BRISTOL-MYERS SQUIBB COMPANY-13072632

PATIENT
  Age: 86 Year
  Sex: Male

DRUGS (9)
  1. COUMADIN [Suspect]
     Indication: ATRIAL FIBRILLATION
     Dosage: NDC #: 00056017370
     Route: 048
  2. LASIX [Concomitant]
  3. K-DUR 10 [Concomitant]
  4. RESTORIL [Concomitant]
  5. ZESTRIL [Concomitant]
  6. PAXIL [Concomitant]
  7. SPIRONOLACTONE [Concomitant]
  8. LANOXIN [Concomitant]
  9. OXYGEN [Concomitant]
     Route: 045

REACTIONS (3)
  - CARDIAC DISORDER [None]
  - DEPRESSED LEVEL OF CONSCIOUSNESS [None]
  - HAEMORRHAGE INTRACRANIAL [None]
